FAERS Safety Report 25764583 (Version 1)
Quarter: 2025Q3

REPORT INFORMATION
  Report Type: Spontaneous
  Country: US (occurrence: US)
  Receive Date: 20250905
  Receipt Date: 20250905
  Transmission Date: 20251021
  Serious: No
  Sender: DOMPE FARMACEUTICI
  Company Number: US-FARMAPROD-202501-0113

PATIENT
  Sex: Female

DRUGS (8)
  1. OXERVATE [Suspect]
     Active Substance: CENEGERMIN-BKBJ
     Indication: Neurotrophic keratopathy
     Route: 047
     Dates: start: 20231003
  2. OXERVATE [Suspect]
     Active Substance: CENEGERMIN-BKBJ
     Route: 047
     Dates: start: 20241126
  3. OXERVATE [Suspect]
     Active Substance: CENEGERMIN-BKBJ
  4. HYDRALAZINE HCL [Concomitant]
     Active Substance: HYDRALAZINE HYDROCHLORIDE
  5. OFLOXACIN [Concomitant]
     Active Substance: OFLOXACIN
  6. ISOSORBIDE DINITRATE [Concomitant]
     Active Substance: ISOSORBIDE DINITRATE
  7. BUMETANIDE [Concomitant]
     Active Substance: BUMETANIDE
  8. PREDNISOLONE-NEPAFENAC [Concomitant]

REACTIONS (3)
  - Eye pain [Not Recovered/Not Resolved]
  - Periorbital pain [Unknown]
  - Eye swelling [Unknown]
